FAERS Safety Report 9684834 (Version 1)
Quarter: 2013Q4

REPORT INFORMATION
  Report Type: Report from Study
  Country: IN (occurrence: IN)
  Receive Date: 20131112
  Receipt Date: 20131112
  Transmission Date: 20140711
  Serious: Yes (Hospitalization)
  Sender: FDA-Public Use
  Company Number: PHHY2013IN128286

PATIENT
  Age: 73 Year
  Sex: Female

DRUGS (3)
  1. ACLASTA [Suspect]
     Indication: OSTEOPOROSIS
     Dosage: 5 MG / 100 ML/ YEAR
     Route: 042
     Dates: start: 2010
  2. ACLASTA [Suspect]
     Dosage: 5 MG / 100 ML/ YEAR
     Route: 042
     Dates: start: 2011
  3. ACLASTA [Suspect]
     Dosage: 5 MG / 100 ML/ YEAR
     Route: 042
     Dates: start: 20121126

REACTIONS (6)
  - Hip fracture [Not Recovered/Not Resolved]
  - Increased appetite [Unknown]
  - Flatulence [Unknown]
  - Device breakage [Unknown]
  - Pyrexia [Unknown]
  - Pain [Unknown]
